FAERS Safety Report 17219538 (Version 2)
Quarter: 2020Q1

REPORT INFORMATION
  Report Type: Spontaneous
  Country: US (occurrence: US)
  Receive Date: 20191231
  Receipt Date: 20200106
  Transmission Date: 20200409
  Serious: No
  Sender: FDA-Public Use
  Company Number: US-PFIZER INC-2019558933

PATIENT
  Age: 78 Year
  Sex: Female

DRUGS (4)
  1. LORBRENA [Suspect]
     Active Substance: LORLATINIB
     Dosage: UNK (1 PILL A DAY WHICH WAS A 25% DOSE)
  2. LORBRENA [Suspect]
     Active Substance: LORLATINIB
     Dosage: 1 DF, DAILY
  3. LORBRENA [Suspect]
     Active Substance: LORLATINIB
     Dosage: 25 MG, 1X/DAY
  4. LORBRENA [Suspect]
     Active Substance: LORLATINIB
     Indication: LUNG ADENOCARCINOMA
     Dosage: 25 MG, 2X/DAY
     Route: 048
     Dates: start: 201908

REACTIONS (5)
  - Blood cholesterol abnormal [Unknown]
  - Back pain [Unknown]
  - Oedema peripheral [Unknown]
  - Pain [Unknown]
  - Confusional state [Unknown]

NARRATIVE: CASE EVENT DATE: 2019
